FAERS Safety Report 11878185 (Version 1)
Quarter: 2015Q4

REPORT INFORMATION
  Report Type: Spontaneous
  Country: US (occurrence: US)
  Receive Date: 20151230
  Receipt Date: 20151230
  Transmission Date: 20160305
  Serious: Yes (Hospitalization)
  Sender: FDA-Public Use
  Company Number: US-AXELLIA-000882

PATIENT
  Age: 55 Year
  Sex: Female

DRUGS (1)
  1. VANCOMYCIN [Suspect]
     Active Substance: VANCOMYCIN
     Indication: ANTIBIOTIC PROPHYLAXIS
     Dosage: 1 G VANCOMYCIN IN 250 ML NORMAL SALINE WAS STARTED VIA AN INFUSION PUMP TO RUN OVER 1 HOUR.

REACTIONS (3)
  - Disseminated intravascular coagulation [Recovered/Resolved]
  - Metabolic acidosis [Recovered/Resolved]
  - Anaphylactic reaction [Recovered/Resolved]
